FAERS Safety Report 17888894 (Version 2)
Quarter: 2020Q2

REPORT INFORMATION
  Report Type: Spontaneous
  Country: ES (occurrence: ES)
  Receive Date: 20200612
  Receipt Date: 20200624
  Transmission Date: 20200714
  Serious: Yes (Other)
  Sender: FDA-Public Use
  Company Number: ES-ACCORD-185064

PATIENT
  Age: 92 Year
  Sex: Female

DRUGS (3)
  1. FUROSEMIDE. [Suspect]
     Active Substance: FUROSEMIDE
     Indication: CARDIAC FAILURE ACUTE
     Dosage: 20MG/12H
     Route: 042
     Dates: start: 20191129
  2. HYDROCHLOROTHIAZIDE. [Interacting]
     Active Substance: HYDROCHLOROTHIAZIDE
     Indication: CARDIAC FAILURE ACUTE
     Dosage: 12,5MG /24H
     Route: 048
     Dates: start: 20190808, end: 20191206
  3. ENALAPRIL [Interacting]
     Active Substance: ENALAPRIL
     Indication: CARDIAC FAILURE
     Dosage: 20MG/12H
     Route: 048
     Dates: start: 20190808, end: 20191206

REACTIONS (2)
  - Hyponatraemia [Recovered/Resolved]
  - Drug interaction [Unknown]

NARRATIVE: CASE EVENT DATE: 20191202
